FAERS Safety Report 14352017 (Version 4)
Quarter: 2018Q3

REPORT INFORMATION
  Report Type: Spontaneous
  Country: US (occurrence: US)
  Receive Date: 20180104
  Receipt Date: 20180702
  Transmission Date: 20181010
  Serious: No
  Sender: FDA-Public Use
  Company Number: US-PFIZER INC-2017552742

PATIENT
  Age: 69 Year
  Sex: Female

DRUGS (3)
  1. TAXOTERE [Suspect]
     Active Substance: DOCETAXEL
     Dosage: 250 MLS/HR, UNK (FOR A TOTAL OF 4 CYCLES)
     Dates: start: 20130513, end: 20130717
  2. DOCETAXEL. [Suspect]
     Active Substance: DOCETAXEL
     Dosage: 250 MLS/HR, UNK (FOR A TOTAL OF 4 CYCLES)
     Dates: start: 20130513, end: 20130717
  3. DOCETAXEL. [Suspect]
     Active Substance: DOCETAXEL
     Dosage: 250 MLS/HR, UNK (FOR A TOTAL OF 4 CYCLES)
     Dates: start: 20130513, end: 20130717

REACTIONS (1)
  - Alopecia [Not Recovered/Not Resolved]

NARRATIVE: CASE EVENT DATE: 2013
